FAERS Safety Report 5143082-4 (Version None)
Quarter: 2006Q4

REPORT INFORMATION
  Report Type: 
  Country: None (occurrence: None)
  Receive Date: 20061103
  Receipt Date: 20061023
  Transmission Date: 20070319
  Serious: Yes (Other)
  Sender: FDA-Public Use
  Company Number: PHBS2006JP16688

PATIENT
  Age: 80 Year
  Sex: Female

DRUGS (2)
  1. ZOMETA [Suspect]
     Indication: METASTASES TO BONE
     Dosage: VIA DRIP INFUSION
     Route: 042
  2. NOLVADEX [Concomitant]
     Route: 065

REACTIONS (1)
  - MOVEMENT DISORDER [None]
